FAERS Safety Report 13266403 (Version 2)
Quarter: 2017Q1

REPORT INFORMATION
  Report Type: Spontaneous
  Country: FR (occurrence: FR)
  Receive Date: 20170223
  Receipt Date: 20170309
  Transmission Date: 20170428
  Serious: Yes (Hospitalization, Other)
  Sender: FDA-Public Use
  Company Number: FR-GILEAD-2017-0258640

PATIENT
  Age: 71 Year
  Sex: Female

DRUGS (6)
  1. ZYDELIG [Suspect]
     Active Substance: IDELALISIB
     Dosage: 100 MG, BID
     Route: 048
     Dates: start: 201509, end: 20170120
  2. PENTACARINAT [Concomitant]
     Active Substance: PENTAMIDINE ISETHIONATE
     Dosage: 300 MG, POWER FOR AEROSOL AND PARENTERAL USE, LONG TERM TREATMENT
     Dates: start: 20170118
  3. ERYTHROMYCINE                      /00020901/ [Concomitant]
     Active Substance: ERYTHROMYCIN
     Dosage: LONG TERM TREATMENT
  4. ZYDELIG [Suspect]
     Active Substance: IDELALISIB
     Indication: CHRONIC LYMPHOCYTIC LEUKAEMIA
     Dosage: 150 MG, BID
     Route: 048
     Dates: start: 20150629
  5. ZELITREX [Concomitant]
     Active Substance: VALACYCLOVIR HYDROCHLORIDE
     Dosage: 500 MG, UNK, LONG TERM TREATMENT
     Dates: end: 20170209
  6. CORTANCYL [Concomitant]
     Active Substance: PREDNISONE
     Dosage: LONG TERM TREATMENT

REACTIONS (4)
  - Lung infection [Recovering/Resolving]
  - Abdominal pain [Unknown]
  - Mucosal inflammation [Unknown]
  - Interstitial lung disease [Recovering/Resolving]

NARRATIVE: CASE EVENT DATE: 201701
